FAERS Safety Report 12346633 (Version 2)
Quarter: 2016Q2

REPORT INFORMATION
  Report Type: Report from Study
  Country: US (occurrence: US)
  Receive Date: 20160509
  Receipt Date: 20160527
  Transmission Date: 20160815
  Serious: Yes (Other)
  Sender: FDA-Public Use
  Company Number: US-ABBVIE-16K-163-1616713-00

PATIENT
  Age: 38 Year
  Sex: Male
  Weight: 123.03 kg

DRUGS (5)
  1. HUMIRA [Suspect]
     Active Substance: ADALIMUMAB
     Indication: CROHN^S DISEASE
     Route: 058
     Dates: end: 201104
  2. HUMIRA [Suspect]
     Active Substance: ADALIMUMAB
     Route: 058
     Dates: end: 2013
  3. HUMIRA [Suspect]
     Active Substance: ADALIMUMAB
     Route: 058
     Dates: start: 20160412, end: 20160412
  4. HUMIRA [Suspect]
     Active Substance: ADALIMUMAB
     Route: 058
     Dates: start: 2013, end: 2016
  5. HUMIRA [Suspect]
     Active Substance: ADALIMUMAB
     Route: 058
     Dates: start: 20160427, end: 20160427

REACTIONS (6)
  - Cholecystectomy [Recovered/Resolved]
  - Crohn^s disease [Unknown]
  - Injection site pain [Recovered/Resolved]
  - Crohn^s disease [Recovered/Resolved]
  - Inappropriate schedule of drug administration [Recovered/Resolved]
  - Fistula [Recovering/Resolving]

NARRATIVE: CASE EVENT DATE: 201104
